FAERS Safety Report 15759863 (Version 1)
Quarter: 2018Q4

REPORT INFORMATION
  Report Type: Spontaneous
  Country: US (occurrence: US)
  Receive Date: 20181224
  Receipt Date: 20181224
  Transmission Date: 20190205
  Serious: No
  Sender: FDA-Public Use
  Company Number: None

PATIENT
  Age: 24 Year
  Sex: Female
  Weight: 77.11 kg

DRUGS (1)
  1. MIRENA [Suspect]
     Active Substance: LEVONORGESTREL

REACTIONS (12)
  - Sinusitis [None]
  - Amenorrhoea [None]
  - Respiratory disorder [None]
  - Impaired driving ability [None]
  - Cough [None]
  - Dizziness [None]
  - Fatigue [None]
  - Fall [None]
  - Lower respiratory tract infection [None]
  - Increased viscosity of upper respiratory secretion [None]
  - Nausea [None]
  - Panic attack [None]
